FAERS Safety Report 8089802-0 (Version None)
Quarter: 2012Q1

REPORT INFORMATION
  Report Type: 
  Country: None (occurrence: None)
  Receive Date: 20120128
  Receipt Date: 20110617
  Transmission Date: 20120608
  Serious: No
  Sender: FDA-Public Use
  Company Number: US-ABBOTT-11P-163-0733713-00

PATIENT
  Sex: Male
  Weight: 99.88 kg

DRUGS (2)
  1. HUMIRA [Suspect]
     Indication: PSORIASIS
     Dates: start: 20101201
  2. TEMAZEPAM [Concomitant]
     Indication: SLEEP DISORDER THERAPY

REACTIONS (3)
  - POLLAKIURIA [None]
  - DIABETES MELLITUS [None]
  - WEIGHT DECREASED [None]
